FAERS Safety Report 19959953 (Version 1)
Quarter: 2021Q4

REPORT INFORMATION
  Report Type: Spontaneous
  Country: US (occurrence: US)
  Receive Date: 20211015
  Receipt Date: 20211015
  Transmission Date: 20220303
  Serious: Yes (Hospitalization)
  Sender: FDA-Public Use
  Company Number: None

PATIENT
  Age: 70 Year
  Sex: Female
  Weight: 115 kg

DRUGS (1)
  1. APIXABAN [Suspect]
     Active Substance: APIXABAN
     Indication: Atrial fibrillation
     Route: 048
     Dates: start: 20210706, end: 20210725

REACTIONS (7)
  - Occult blood positive [None]
  - Hypotension [None]
  - Haemoglobin decreased [None]
  - Unresponsive to stimuli [None]
  - Haematocrit decreased [None]
  - Gastrointestinal haemorrhage [None]
  - Sepsis [None]

NARRATIVE: CASE EVENT DATE: 20210725
